FAERS Safety Report 5305698-1 (Version None)
Quarter: 2007Q2

REPORT INFORMATION
  Report Type: 
  Country: None (occurrence: None)
  Receive Date: 20070423
  Receipt Date: 20070423
  Transmission Date: 20071010
  Serious: Yes (Hospitalization)
  Sender: FDA-Public Use
  Company Number: None

PATIENT
  Age: 63 Year
  Sex: Male
  Weight: 78.9259 kg

DRUGS (2)
  1. REGULAR INSULIN [Suspect]
     Dosage: 40 UNITS X 1 SC
     Route: 058
  2. NPH ILETIN II [Suspect]
     Dosage: 35 UNITS QAM SC
     Route: 058

REACTIONS (6)
  - ANOREXIA [None]
  - DIARRHOEA [None]
  - DRUG ADMINISTRATION ERROR [None]
  - HYPOGLYCAEMIA [None]
  - NAUSEA [None]
  - VOMITING [None]
